FAERS Safety Report 21572608 (Version 1)
Quarter: 2022Q4

REPORT INFORMATION
  Report Type: Spontaneous
  Country: US (occurrence: US)
  Receive Date: 20221109
  Receipt Date: 20221109
  Transmission Date: 20230113
  Serious: No
  Sender: FDA-Public Use
  Company Number: US-FreseniusKabi-FK202214724

PATIENT

DRUGS (3)
  1. VINBLASTINE [Suspect]
     Active Substance: VINBLASTINE
     Indication: Hodgkin^s disease
     Dosage: HCP REPORTED THE PATIENT EXPERIENCED AN INFUSION REACTION ON THE DAY 15 DOSE OF A+AVD OF THE FIRST C
     Route: 065
  2. DACARBAZINE [Suspect]
     Active Substance: DACARBAZINE
     Indication: Hodgkin^s disease
     Dosage: HCP REPORTED THE PATIENT EXPERIENCED AN INFUSION REACTION ON THE DAY 15 DOSE OF A+AVD OF THE FIRST C
     Route: 065
  3. ADCETRIS [Suspect]
     Active Substance: BRENTUXIMAB VEDOTIN
     Indication: Hodgkin^s disease
     Route: 065

REACTIONS (1)
  - Infusion related reaction [Unknown]
